FAERS Safety Report 8515390-8 (Version None)
Quarter: 2012Q3

REPORT INFORMATION
  Report Type: 
  Country: None (occurrence: None)
  Receive Date: 20120705
  Receipt Date: 20120620
  Transmission Date: 20120928
  Serious: Yes (Death, Hospitalization, Other)
  Sender: FDA-Public Use
  Company Number: 1325541

PATIENT
  Age: 62 Year
  Sex: Female
  Weight: 61.5 kg

DRUGS (7)
  1. IRINOTECAN HYDROCHLORIDE [Suspect]
     Indication: COLON CANCER METASTATIC
     Dosage: 300 MG MILLIGRAM(S), 1 WEEK, INTRAVENOUS (NOT OTHERWISE SPECIFIED)
     Route: 042
     Dates: start: 20111101, end: 20120313
  2. AVASTIN [Suspect]
     Indication: COLON CANCER METASTATIC
     Dosage: 312.5 MILLIGRAM(S) (1 WEEK) INTRAVENOUS (NOT OTHERWISE SPECIFIED)
     Route: 042
     Dates: start: 20111115, end: 20120313
  3. AMLODIPINE [Concomitant]
  4. (CO-DYDRAMOL) [Concomitant]
  5. FLUOROURACIL [Suspect]
     Indication: COLON CANCER METASTATIC
     Dosage: 550 MG MILLIGRAM(S), 1 WEEK, INTRAVENOUS BOLUS ; 3600 OVER 48 HOURS
     Route: 040
  6. FLUOROURACIL [Suspect]
     Indication: COLON CANCER METASTATIC
     Dosage: 550 MG MILLIGRAM(S), 1 WEEK, INTRAVENOUS BOLUS ; 3600 OVER 48 HOURS
     Route: 040
     Dates: start: 20111101, end: 20120313
  7. LANSOPRAZOLE [Concomitant]

REACTIONS (5)
  - UPPER GASTROINTESTINAL HAEMORRHAGE [None]
  - MALAISE [None]
  - HYPOTENSION [None]
  - PULMONARY EMBOLISM [None]
  - SMALL INTESTINAL OBSTRUCTION [None]
